FAERS Safety Report 9113276 (Version 4)
Quarter: 2014Q2

REPORT INFORMATION
  Report Type: Spontaneous
  Country: US (occurrence: US)
  Receive Date: 20130211
  Receipt Date: 20140630
  Transmission Date: 20141212
  Serious: Yes (Hospitalization, Other)
  Sender: FDA-Public Use
  Company Number: US-009507513-1302USA002852

PATIENT
  Sex: Female
  Weight: 106.58 kg

DRUGS (2)
  1. NUVARING [Suspect]
     Indication: CONTRACEPTION
     Dosage: UNK
     Route: 067
     Dates: start: 20100817, end: 20110418
  2. NUVARING [Suspect]
     Dosage: UNK
     Route: 067
     Dates: end: 20110628

REACTIONS (25)
  - Abortion [Unknown]
  - Exposure during pregnancy [Unknown]
  - Pulmonary embolism [Recovered/Resolved]
  - Pulmonary infarction [Recovered/Resolved]
  - Coagulopathy [Unknown]
  - Pain [Unknown]
  - Uterine haemorrhage [Unknown]
  - Lobar pneumonia [Unknown]
  - Anaemia [Not Recovered/Not Resolved]
  - Coagulopathy [Unknown]
  - Breast cellulitis [Recovered/Resolved]
  - Bacterial disease carrier [Unknown]
  - Arthralgia [Not Recovered/Not Resolved]
  - Dyslipidaemia [Unknown]
  - Folliculitis [Unknown]
  - Depression [Unknown]
  - Pain [Unknown]
  - Cystitis haemorrhagic [Unknown]
  - Mastitis [Unknown]
  - Hypertriglyceridaemia [Not Recovered/Not Resolved]
  - Nicotine dependence [Not Recovered/Not Resolved]
  - Back pain [Not Recovered/Not Resolved]
  - Breast abscess [Recovered/Resolved]
  - Breast cyst [Recovered/Resolved]
  - Embolism venous [Unknown]
